FAERS Safety Report 18470526 (Version 1)
Quarter: 2020Q4

REPORT INFORMATION
  Report Type: Spontaneous
  Country: CN (occurrence: CN)
  Receive Date: 20201106
  Receipt Date: 20201106
  Transmission Date: 20210114
  Serious: Yes (Other)
  Sender: FDA-Public Use
  Company Number: CN-ROCHE-2704975

PATIENT
  Age: 39 Year
  Sex: Female

DRUGS (11)
  1. CARBOPLATIN. [Concomitant]
     Active Substance: CARBOPLATIN
  2. DOCETAXEL. [Concomitant]
     Active Substance: DOCETAXEL
  3. TAMOXIFEN [Concomitant]
     Active Substance: TAMOXIFEN
  4. VINORELBINE [Concomitant]
     Active Substance: VINORELBINE TARTRATE
  5. PACLITAXEL. [Concomitant]
     Active Substance: PACLITAXEL
  6. PACLITAXEL ALBUMIN [Concomitant]
     Active Substance: PACLITAXEL
  7. HERCEPTIN [Suspect]
     Active Substance: TRASTUZUMAB
     Indication: INVASIVE DUCTAL BREAST CARCINOMA
     Route: 041
     Dates: start: 20150610, end: 20150629
  8. PERJETA [Suspect]
     Active Substance: PERTUZUMAB
     Indication: INVASIVE DUCTAL BREAST CARCINOMA
     Route: 065
  9. HERCEPTIN [Suspect]
     Active Substance: TRASTUZUMAB
     Indication: INVASIVE DUCTAL BREAST CARCINOMA
     Route: 065
  10. HERCEPTIN [Suspect]
     Active Substance: TRASTUZUMAB
     Route: 065
  11. PYROTINIB [Concomitant]
     Active Substance: PYROTINIB

REACTIONS (2)
  - Myelosuppression [Unknown]
  - Hepatic function abnormal [Unknown]
